FAERS Safety Report 9742907 (Version 1)
Quarter: 2013Q4

REPORT INFORMATION
  Report Type: Spontaneous
  Country: US (occurrence: US)
  Receive Date: 20131210
  Receipt Date: 20131210
  Transmission Date: 20140711
  Serious: No
  Sender: FDA-Public Use
  Company Number: US-VIIV HEALTHCARE LIMITED-A1046127A

PATIENT
  Age: 38 Year
  Sex: Male

DRUGS (7)
  1. TIVICAY [Suspect]
     Indication: HIV INFECTION
     Route: 048
     Dates: start: 20130930
  2. WELLBUTRIN [Concomitant]
     Route: 048
  3. PREZISTA [Concomitant]
  4. NORVIR [Concomitant]
  5. TRUVADA [Concomitant]
     Dates: start: 201307
  6. CLONOPIN [Concomitant]
  7. ALBUTEROL [Concomitant]

REACTIONS (3)
  - Neuropathy peripheral [Not Recovered/Not Resolved]
  - Fatigue [Unknown]
  - Paraesthesia [Unknown]
